FAERS Safety Report 8464447-9 (Version None)
Quarter: 2012Q2

REPORT INFORMATION
  Report Type: 
  Country: None (occurrence: None)
  Receive Date: 20120626
  Receipt Date: 20120618
  Transmission Date: 20120825
  Serious: No
  Sender: FDA-Public Use
  Company Number: US-BIOGENIDEC-2012BI021816

PATIENT
  Sex: Female

DRUGS (2)
  1. AVONEX [Suspect]
     Indication: MULTIPLE SCLEROSIS
     Route: 030
     Dates: start: 20061005
  2. NEURONTIN [Concomitant]
     Indication: NEUROPATHY PERIPHERAL

REACTIONS (4)
  - MULTIPLE SCLEROSIS RELAPSE [None]
  - MEAN CELL HAEMOGLOBIN INCREASED [None]
  - RED BLOOD CELL COUNT DECREASED [None]
  - INFLUENZA [None]
